FAERS Safety Report 9712276 (Version 2)
Quarter: 2013Q4

REPORT INFORMATION
  Report Type: Spontaneous
  Country: US (occurrence: US)
  Receive Date: 20131126
  Receipt Date: 20131126
  Transmission Date: 20140711
  Serious: No
  Sender: FDA-Public Use
  Company Number: US-BRISTOL-MYERS SQUIBB COMPANY-18854125

PATIENT
  Age: 56 Year
  Sex: Male

DRUGS (2)
  1. BYDUREON [Suspect]
     Indication: DIABETES MELLITUS
     Dosage: NO OF INJECTIONS:2
     Route: 058
     Dates: start: 20130514
  2. BYDUREON [Suspect]
     Indication: BLOOD GLUCOSE INCREASED
     Dosage: NO OF INJECTIONS:2
     Route: 058
     Dates: start: 20130514

REACTIONS (2)
  - Nausea [Unknown]
  - Dizziness [Unknown]
